FAERS Safety Report 7475380-3 (Version None)
Quarter: 2011Q2

REPORT INFORMATION
  Report Type: 
  Country: None (occurrence: None)
  Receive Date: 20110512
  Receipt Date: 20110509
  Transmission Date: 20111010
  Serious: Yes (Life-Threatening)
  Sender: FDA-Public Use
  Company Number: FR-B.I. PHARMACEUTICALS,INC./RIDGEFIELD-2011-FF-00460FF

PATIENT
  Sex: Female

DRUGS (8)
  1. IMOVANE [Concomitant]
  2. PRADAXA [Suspect]
     Indication: ATRIAL FIBRILLATION
     Dosage: 220 MG
     Route: 048
     Dates: start: 20110223, end: 20110412
  3. PROZAC [Concomitant]
     Route: 048
  4. GAVISCON [Concomitant]
  5. FORLAX [Concomitant]
  6. NEXIUM [Concomitant]
     Route: 048
  7. ATORVASTATIN CALCIUM [Concomitant]
     Route: 048
  8. NICORETTE [Concomitant]

REACTIONS (2)
  - ISCHAEMIC STROKE [None]
  - DRUG INEFFECTIVE [None]
